FAERS Safety Report 4455924-6 (Version None)
Quarter: 2004Q3

REPORT INFORMATION
  Report Type: 
  Country: None (occurrence: None)
  Receive Date: 20040920
  Receipt Date: 20040910
  Transmission Date: 20050211
  Serious: Yes (Death)
  Sender: FDA-Public Use
  Company Number: 2004-BP-06414RO

PATIENT
  Age: 30 Year
  Sex: Female
  Weight: 160.9 kg

DRUGS (1)
  1. METHADONE HCL [Suspect]
     Dates: end: 20030101

REACTIONS (12)
  - BLOOD CHLORIDE INCREASED [None]
  - BLOOD CREATININE DECREASED [None]
  - BLOOD GLUCOSE DECREASED [None]
  - BLOOD POTASSIUM INCREASED [None]
  - BLOOD SODIUM INCREASED [None]
  - CARDIOMEGALY [None]
  - DRUG SCREEN POSITIVE [None]
  - OBESITY [None]
  - PULMONARY CONGESTION [None]
  - PULMONARY OEDEMA [None]
  - SKIN BLEEDING [None]
  - THERAPEUTIC AGENT TOXICITY [None]
